FAERS Safety Report 10171117 (Version 1)
Quarter: 2014Q2

REPORT INFORMATION
  Report Type: Spontaneous
  Country: US (occurrence: None)
  Receive Date: 20140513
  Receipt Date: 20140513
  Transmission Date: 20141212
  Serious: Yes (Hospitalization)
  Sender: FDA-Public Use
  Company Number: None

PATIENT
  Age: 73 Year
  Sex: Male
  Weight: 95.6 kg

DRUGS (5)
  1. PAZOPANIB [Suspect]
     Indication: ANGIOSARCOMA
     Route: 048
     Dates: start: 20140403, end: 20140424
  2. AMLODIPINE [Concomitant]
  3. BENAZEPRIL [Concomitant]
  4. METOPROLOL [Concomitant]
  5. INSULIN [Concomitant]

REACTIONS (3)
  - Dyspnoea [None]
  - Oedema [None]
  - Weight increased [None]
